FAERS Safety Report 17167953 (Version 1)
Quarter: 2019Q4

REPORT INFORMATION
  Report Type: Spontaneous
  Country: US (occurrence: US)
  Receive Date: 20191218
  Receipt Date: 20191218
  Transmission Date: 20200122
  Serious: No
  Sender: FDA-Public Use
  Company Number: US-ALK-ABELLO A/S-2019AA004205

PATIENT

DRUGS (1)
  1. DAE BULK 555 CAT HAIR [Suspect]
     Active Substance: FELIS CATUS HAIR
     Indication: SKIN TEST

REACTIONS (1)
  - False negative investigation result [Unknown]
